FAERS Safety Report 8435700-X (Version None)
Quarter: 2012Q2

REPORT INFORMATION
  Report Type: 
  Country: None (occurrence: None)
  Receive Date: 20120608
  Receipt Date: 20120529
  Transmission Date: 20120825
  Serious: Yes (Life-Threatening, Hospitalization)
  Sender: FDA-Public Use
  Company Number: 2012SP016936

PATIENT
  Sex: Female
  Weight: 77.4 kg

DRUGS (20)
  1. DOXYCYCLINE [Concomitant]
  2. FLUOXETINE [Concomitant]
  3. CARBAMAZEPINE [Suspect]
     Indication: CONVULSION
     Dosage: 100 MG;BID;PO
     Route: 048
     Dates: end: 20120328
  4. VALPROATE SODIUM [Concomitant]
  5. METACLOPRAMIDE [Concomitant]
  6. OXYCODONE HCL [Concomitant]
  7. FLUOXETINE [Concomitant]
  8. PANTOPRAZOLE [Concomitant]
  9. FLUTICASONE PROPIONATE/SALMETEROL [Concomitant]
  10. TEMODAL [Suspect]
     Indication: GLIOMA
     Dosage: 270 MG;;PO
     Route: 048
     Dates: start: 20111201, end: 20120302
  11. VALPROATE SODIUM [Concomitant]
  12. LEVETIRACETAM [Concomitant]
  13. ACETAMINOPHEN [Concomitant]
  14. CEFTRIAXONE [Concomitant]
  15. MAGMIN [Concomitant]
  16. ACETAMINOPHEN W/ CODEINE [Concomitant]
  17. CLONAZEPAM [Concomitant]
  18. ENOXAPARIN SODIUM [Concomitant]
  19. TEMAZEPAM [Concomitant]
  20. ROXITHROMYCIN [Concomitant]

REACTIONS (8)
  - RESPIRATORY FAILURE [None]
  - HEPATITIS ACUTE [None]
  - DEHYDRATION [None]
  - LOWER RESPIRATORY TRACT INFECTION [None]
  - PNEUMOCYSTIS JIROVECI PNEUMONIA [None]
  - GASTROENTERITIS VIRAL [None]
  - HYPONATRAEMIA [None]
  - PNEUMONITIS [None]
